FAERS Safety Report 8988884 (Version 1)
Quarter: 2012Q4

REPORT INFORMATION
  Report Type: 
  Country: US (occurrence: US)
  Receive Date: 20121228
  Receipt Date: 20121228
  Transmission Date: 20130627
  Serious: Yes (Hospitalization)
  Sender: FDA-Public Use
  Company Number: US-SANOFI-AVENTIS-2012SA092484

PATIENT
  Age: 51 Year
  Sex: Male

DRUGS (4)
  1. LANTUS SOLOSTAR [Suspect]
     Dosage: Dose:80 unit(s)
     Route: 058
  2. LANTUS SOLOSTAR [Suspect]
     Dosage: Dose:80 unit(s)
     Route: 058
  3. SOLOSTAR [Suspect]
  4. SOLOSTAR [Suspect]

REACTIONS (2)
  - Lower limb fracture [Unknown]
  - Fall [Unknown]
